FAERS Safety Report 21975610 (Version 3)
Quarter: 2023Q1

REPORT INFORMATION
  Report Type: Report from Study
  Country: AR (occurrence: None)
  Receive Date: 20230210
  Receipt Date: 20230321
  Transmission Date: 20230417
  Serious: Yes (Hospitalization)
  Sender: FDA-Public Use
  Company Number: AR-ROCHE-3276689

PATIENT
  Age: 44 Year
  Sex: Male
  Weight: 101 kg

DRUGS (9)
  1. MOSUNETUZUMAB [Suspect]
     Active Substance: MOSUNETUZUMAB
     Indication: B-cell lymphoma
     Dosage: DOSE LAST STUDY DRUG ADMIN PRIOR AE/SAE WAS 45 MG?DOSE LAST STUDY DRUG ADMIN PRIOR SAE WAS 2 MG (QUA
     Route: 058
     Dates: start: 20230105
  2. POLATUZUMAB VEDOTIN [Suspect]
     Active Substance: POLATUZUMAB VEDOTIN
     Indication: B-cell lymphoma
     Dosage: DOSE LAST STUDY DRUG ADMIN PRIOR AE/SAE WAS 196 MG?DOSE LAST STUDY DRUG ADMIN PRIOR SAE WAS 1.8 MG?O
     Route: 042
     Dates: start: 20230105
  3. CLOBETASOL [Concomitant]
     Active Substance: CLOBETASOL
     Indication: Injection site erythema
     Dosage: 1 U
     Route: 061
     Dates: start: 20230107
  4. URSODIOL [Concomitant]
     Active Substance: URSODIOL
     Indication: Hypertransaminasaemia
     Dates: start: 20230111
  5. OMEPRAZOLE [Concomitant]
     Active Substance: OMEPRAZOLE
     Indication: Gastritis prophylaxis
     Dates: start: 20230107, end: 20230206
  6. LYSINE CLONIXINATE [Concomitant]
     Indication: Pyrexia
     Dates: start: 20230130, end: 20230130
  7. FILGRASTIM [Concomitant]
     Active Substance: FILGRASTIM
     Indication: Prophylaxis
     Dates: start: 20230202, end: 20230210
  8. FAMOTIDINE [Concomitant]
     Active Substance: FAMOTIDINE
     Dates: start: 20230207
  9. METRONIDAZOLE [Concomitant]
     Active Substance: METRONIDAZOLE
     Indication: Enteritis
     Dates: start: 20230214

REACTIONS (3)
  - Device related infection [Recovered/Resolved]
  - Pneumonia [Recovered/Resolved]
  - Alanine aminotransferase increased [Recovered/Resolved]

NARRATIVE: CASE EVENT DATE: 20230129
